FAERS Safety Report 24994432 (Version 1)
Quarter: 2025Q1

REPORT INFORMATION
  Report Type: Report from Study
  Country: NL (occurrence: NL)
  Receive Date: 20250221
  Receipt Date: 20250221
  Transmission Date: 20250408
  Serious: Yes (Other)
  Sender: MYLAN
  Company Number: NL-MYLANLABS-2024M1097516

PATIENT
  Sex: Female

DRUGS (1)
  1. GLATIRAMER ACETATE [Suspect]
     Active Substance: GLATIRAMER ACETATE
     Indication: Relapsing multiple sclerosis
     Dosage: 3XW (3.00 X PER WEEK)
     Route: 058

REACTIONS (4)
  - Gestational diabetes [Unknown]
  - Injection site irritation [Not Recovered/Not Resolved]
  - Injection site induration [Not Recovered/Not Resolved]
  - Maternal exposure during pregnancy [Unknown]

NARRATIVE: CASE EVENT DATE: 20240807
